FAERS Safety Report 10723654 (Version 2)
Quarter: 2015Q1

REPORT INFORMATION
  Report Type: Spontaneous
  Country: US (occurrence: None)
  Receive Date: 20150114
  Receipt Date: 20150128
  Transmission Date: 20150721
  Serious: Yes (Hospitalization, Other)
  Sender: FDA-Public Use
  Company Number: RAP-0001-2015

PATIENT
  Age: 20 Year
  Sex: Female
  Weight: 42 kg

DRUGS (2)
  1. PROCYSBI DELAYED-RELEASE [Suspect]
     Active Substance: CYSTEAMINE BITARTRATE
     Indication: CYSTINOSIS
     Dosage: 1350 MG (675 MG,1 IN 12 HR), PER ORAL?
     Route: 048
     Dates: start: 20140310
  2. PROCYSBI DELAYED-RELEASE [Suspect]
     Active Substance: CYSTEAMINE BITARTRATE
     Indication: CHRONIC KIDNEY DISEASE
     Dosage: 1350 MG (675 MG,1 IN 12 HR), PER ORAL?
     Route: 048
     Dates: start: 20140310

REACTIONS (2)
  - Transplant [None]
  - Renal transplant [None]
